FAERS Safety Report 10280289 (Version 1)
Quarter: 2014Q3

REPORT INFORMATION
  Report Type: Spontaneous
  Country: US (occurrence: None)
  Receive Date: 20140701
  Receipt Date: 20140701
  Transmission Date: 20150326
  Serious: Yes (Hospitalization)
  Sender: FDA-Public Use
  Company Number: None

PATIENT
  Age: 22 Year
  Sex: Female
  Weight: 58.97 kg

DRUGS (1)
  1. MACROBID [Suspect]
     Active Substance: NITROFURANTOIN\NITROFURANTOIN MONOHYDRATE
     Indication: URINARY TRACT INFECTION
     Route: 048
     Dates: start: 20140623, end: 20140630

REACTIONS (8)
  - Oropharyngeal pain [None]
  - Rhinorrhoea [None]
  - Influenza [None]
  - Cough [None]
  - Dyspnoea [None]
  - Apparent death [None]
  - Chest pain [None]
  - Multiple allergies [None]

NARRATIVE: CASE EVENT DATE: 20140630
